FAERS Safety Report 6714064-3 (Version None)
Quarter: 2010Q2

REPORT INFORMATION
  Report Type: 
  Country: None (occurrence: None)
  Receive Date: 20100506
  Receipt Date: 20100426
  Transmission Date: 20101027
  Serious: Yes (Hospitalization, Other)
  Sender: FDA-Public Use
  Company Number: US-PURDUE-USA-2010-0043569

PATIENT
  Sex: Male
  Weight: 59.8 kg

DRUGS (9)
  1. OXYCONTIN [Suspect]
     Indication: PAIN
     Dosage: 40 MG, BID
     Route: 048
     Dates: start: 20100226
  2. PF-03084014 [Suspect]
     Indication: COLORECTAL CANCER METASTATIC
     Dosage: 80 MG, BID
     Route: 048
     Dates: start: 20100226, end: 20100318
  3. OXYCODONE HYDROCHLORIDE [Concomitant]
     Dosage: UNK
     Dates: start: 20100210
  4. LISINOPRIL [Concomitant]
     Indication: HYPERTENSION
     Dosage: UNK
     Dates: start: 20090810
  5. GLIMEPIRIDE [Concomitant]
     Dosage: UNK
     Dates: start: 20100205
  6. NADOLOL [Concomitant]
     Dosage: UNK
     Dates: start: 20091123
  7. COLACE CAPSULES [Concomitant]
     Dosage: UNK
     Dates: start: 20091123
  8. ATIVAN [Concomitant]
     Dosage: UNK
     Dates: start: 20090406
  9. BACLOFEN [Concomitant]
     Dosage: UNK
     Dates: start: 20100317

REACTIONS (7)
  - CONFUSIONAL STATE [None]
  - DECREASED APPETITE [None]
  - DEHYDRATION [None]
  - FLUID INTAKE REDUCED [None]
  - LETHARGY [None]
  - METABOLIC ACIDOSIS [None]
  - SOMNOLENCE [None]
